FAERS Safety Report 6782296-4 (Version None)
Quarter: 2010Q2

REPORT INFORMATION
  Report Type: 
  Country: None (occurrence: None)
  Receive Date: 20100621
  Receipt Date: 20100617
  Transmission Date: 20101027
  Serious: Yes (Hospitalization)
  Sender: FDA-Public Use
  Company Number: ES-BRISTOL-MYERS SQUIBB COMPANY-15013980

PATIENT
  Age: 69 Year
  Sex: Male
  Weight: 77 kg

DRUGS (2)
  1. CISPLATIN [Suspect]
     Indication: GASTROOESOPHAGEAL CANCER
     Dosage: DAY 1 OF THE CYCLE
     Route: 042
     Dates: start: 20100210
  2. CAPECITABINE [Suspect]
     Indication: GASTROOESOPHAGEAL CANCER
     Dosage: DAYS 1 15; TABS, MOST RECENT ON 16FEB10.
     Route: 048
     Dates: start: 20100210

REACTIONS (2)
  - MUCOSAL INFLAMMATION [None]
  - VOMITING [None]
